FAERS Safety Report 5147354-9 (Version None)
Quarter: 2006Q4

REPORT INFORMATION
  Report Type: 
  Country: None (occurrence: None)
  Receive Date: 20061102
  Receipt Date: 20061024
  Transmission Date: 20070319
  Serious: Yes (Death)
  Sender: FDA-Public Use
  Company Number: HQWYE578125OCT06

PATIENT
  Age: 78 Year
  Sex: Female

DRUGS (1)
  1. ADVIL [Suspect]
     Indication: GROIN PAIN
     Dosage: ORAL
     Route: 048

REACTIONS (1)
  - DEATH [None]
